FAERS Safety Report 5412363-9 (Version None)
Quarter: 2007Q3

REPORT INFORMATION
  Report Type: 
  Country: None (occurrence: None)
  Receive Date: 20070813
  Receipt Date: 20070807
  Transmission Date: 20080115
  Serious: Yes (Hospitalization)
  Sender: FDA-Public Use
  Company Number: US-AMGEN-US237548

PATIENT
  Sex: Male
  Weight: 122.8 kg

DRUGS (20)
  1. PALIFERMIN [Suspect]
     Indication: HIV INFECTION
     Route: 042
     Dates: start: 20070219, end: 20070221
  2. SUSTIVA [Concomitant]
     Route: 048
  3. TRUVADA [Concomitant]
     Route: 048
  4. DAPSONE [Concomitant]
     Route: 048
     Dates: start: 20010401
  5. ACTOS [Concomitant]
     Route: 048
  6. NEURONTIN [Concomitant]
     Route: 048
     Dates: start: 20050127
  7. TENORMIN [Concomitant]
     Route: 048
     Dates: start: 20040924
  8. CRESTOR [Concomitant]
     Route: 048
     Dates: start: 20060503
  9. ZAROXOLYN [Concomitant]
     Route: 048
     Dates: start: 20050101
  10. COZAAR [Concomitant]
     Route: 048
     Dates: start: 20020101
  11. IBUPROFEN [Concomitant]
     Route: 048
     Dates: start: 20030214
  12. K-DUR 10 [Concomitant]
     Route: 048
     Dates: start: 20050115
  13. GLUCOPHAGE [Concomitant]
     Route: 048
     Dates: start: 20040308
  14. NEXIUM [Concomitant]
     Route: 048
     Dates: start: 20010701
  15. GLIMEPIRIDE [Concomitant]
     Route: 048
  16. ASCORBIC ACID [Concomitant]
     Route: 065
     Dates: start: 20010101
  17. TRIAMCINOLONE [Concomitant]
     Route: 065
     Dates: start: 20010101
  18. OXYGEN [Concomitant]
     Route: 055
     Dates: start: 20040304
  19. NAPROXEN [Concomitant]
     Route: 065
     Dates: start: 20070517
  20. CHANTIX [Concomitant]
     Route: 065
     Dates: start: 20070101

REACTIONS (1)
  - LARYNGEAL CANCER [None]
